FAERS Safety Report 5323949-4 (Version None)
Quarter: 2007Q2

REPORT INFORMATION
  Report Type: 
  Country: None (occurrence: None)
  Receive Date: 20070509
  Receipt Date: 20070509
  Transmission Date: 20071010
  Serious: Yes (Hospitalization)
  Sender: FDA-Public Use
  Company Number: None

PATIENT
  Sex: Male
  Weight: 62 kg

DRUGS (6)
  1. OXALIPLATIN [Suspect]
     Indication: METASTASES TO BONE
     Dosage: 85MG/M2 D1 AND D15 IV
     Route: 042
     Dates: start: 20070404
  2. OXALIPLATIN [Suspect]
     Indication: METASTASES TO LIVER
     Dosage: 85MG/M2 D1 AND D15 IV
     Route: 042
     Dates: start: 20070404
  3. OXALIPLATIN [Suspect]
     Indication: RECTAL CANCER METASTATIC
     Dosage: 85MG/M2 D1 AND D15 IV
     Route: 042
     Dates: start: 20070404
  4. AVASTIN [Suspect]
     Indication: RECTAL CANCER METASTATIC
     Dosage: D1 AND D15 IV
     Route: 042
     Dates: start: 20070404
  5. XELODA [Suspect]
     Indication: RECTAL CANCER METASTATIC
     Dosage: D1 AND D15 IV
     Route: 042
     Dates: start: 20070404, end: 20070412
  6. XELODA [Suspect]
     Indication: RECTAL CANCER METASTATIC
     Dosage: 1300 MG PO BID D1-14
     Route: 048
     Dates: start: 20070404, end: 20070412

REACTIONS (4)
  - IMPAIRED HEALING [None]
  - INCISION SITE COMPLICATION [None]
  - SEROMA [None]
  - WOUND INFECTION [None]
